FAERS Safety Report 20922827 (Version 1)
Quarter: 2022Q2

REPORT INFORMATION
  Report Type: Spontaneous
  Country: JP (occurrence: JP)
  Receive Date: 20220607
  Receipt Date: 20220607
  Transmission Date: 20220721
  Serious: Yes (Death, Other)
  Sender: FDA-Public Use
  Company Number: JP-CELGENE-JPN-20220205312

PATIENT
  Age: 72 Year
  Sex: Male

DRUGS (2)
  1. AZACITIDINE [Suspect]
     Active Substance: AZACITIDINE
     Indication: Acute myeloid leukaemia
     Dosage: FREQUENCY TEXT: NOT PROVIDED
     Route: 058
  2. VENETOCLAX [Suspect]
     Active Substance: VENETOCLAX
     Indication: Product used for unknown indication
     Dosage: FREQUENCY TEXT: NOT PROVIDED
     Route: 048

REACTIONS (1)
  - Streptococcal sepsis [Fatal]
